FAERS Safety Report 9425167 (Version 2)
Quarter: 2013Q4

REPORT INFORMATION
  Report Type: Spontaneous
  Country: US (occurrence: US)
  Receive Date: 20130729
  Receipt Date: 20131029
  Transmission Date: 20140711
  Serious: Yes (Hospitalization)
  Sender: FDA-Public Use
  Company Number: US-PFIZER INC-2013217453

PATIENT
  Age: 48 Year
  Sex: Male

DRUGS (2)
  1. LYRICA [Suspect]
     Dosage: 300 MG, BID
     Route: 048
  2. ZOLOFT [Concomitant]
     Dosage: 50 MG, ONCE A DAY
     Route: 048

REACTIONS (2)
  - Small intestinal obstruction [Recovering/Resolving]
  - Hypophagia [Unknown]
